FAERS Safety Report 5270158-3 (Version None)
Quarter: 2007Q1

REPORT INFORMATION
  Report Type: 
  Country: None (occurrence: None)
  Receive Date: 20070320
  Receipt Date: 20070312
  Transmission Date: 20070707
  Serious: Yes (Hospitalization)
  Sender: FDA-Public Use
  Company Number: FR-ELI_LILLY_AND_COMPANY-FR200703002515

PATIENT
  Age: 74 Year
  Sex: Female

DRUGS (4)
  1. FORTEO [Suspect]
     Indication: OSTEOPOROSIS
     Dosage: 20 UG, DAILY (1/D)
     Route: 058
     Dates: start: 20060907, end: 20070307
  2. SERETIDE [Concomitant]
     Indication: ASTHMA
     Dosage: 2 D/F, DAILY (1/D)
     Dates: start: 20060101
  3. VENTOLINE /00139502/ [Concomitant]
     Indication: ASTHMA
     Dosage: UNK, AS NEEDED
     Dates: start: 20060101
  4. MEDROL [Concomitant]
     Indication: ASTHMA
     Dosage: 16 MG, DAILY (1/D)
     Route: 048
     Dates: start: 20060101

REACTIONS (2)
  - ASTHMATIC CRISIS [None]
  - RESPIRATORY DISORDER [None]
